FAERS Safety Report 16938900 (Version 1)
Quarter: 2019Q4

REPORT INFORMATION
  Report Type: Spontaneous
  Country: US (occurrence: US)
  Receive Date: 20190828
  Receipt Date: 20190828
  Transmission Date: 20200122
  Serious: Yes (Death)
  Sender: FDA-Public Use
  Company Number: None

PATIENT
  Age: 71 Year
  Sex: Male

DRUGS (5)
  1. OMEPRAZOLE. [Concomitant]
     Active Substance: OMEPRAZOLE
  2. MYCOPHENOLATE [Concomitant]
     Active Substance: MYCOPHENOLIC ACID
  3. PREDNISOLONE. [Concomitant]
     Active Substance: PREDNISOLONE
  4. ALBUTEROL. [Concomitant]
     Active Substance: ALBUTEROL
  5. ESBRIET [Suspect]
     Active Substance: PIRFENIDONE
     Route: 048
     Dates: start: 20190604, end: 20190826

REACTIONS (1)
  - Death [None]

NARRATIVE: CASE EVENT DATE: 20190826
